FAERS Safety Report 9224266 (Version 1)
Quarter: 2013Q1

REPORT INFORMATION
  Report Type: Spontaneous
  Country: US (occurrence: None)
  Receive Date: 20120914
  Receipt Date: 20120914
  Transmission Date: 20140127
  Serious: Yes (Other)
  Sender: FDA-Public Use
  Company Number: JPI-P-020865

PATIENT
  Age: 44 Year
  Sex: Male

DRUGS (4)
  1. XYREM (500 MILLIGRAM/MILLILITERS, SOLUTION) (SODIUM OXYBATE) [Suspect]
     Indication: SLEEP DISORDER
     Route: 048
     Dates: start: 20111222
  2. OXYCODONE HYDROCHLORIDE [Concomitant]
  3. TESTOSTERONE [Concomitant]
  4. ARMOUR THYROID [Concomitant]

REACTIONS (2)
  - Blood pressure increased [None]
  - Panic attack [None]
